FAERS Safety Report 8042638-9 (Version None)
Quarter: 2012Q1

REPORT INFORMATION
  Report Type: 
  Country: None (occurrence: None)
  Receive Date: 20120112
  Receipt Date: 20120104
  Transmission Date: 20120608
  Serious: Yes (Hospitalization, Other)
  Sender: FDA-Public Use
  Company Number: US-BAYER-2011-078759

PATIENT
  Age: 47 Year
  Sex: Female
  Weight: 56.689 kg

DRUGS (5)
  1. MULTI-VITAMINS [Concomitant]
     Route: 048
  2. BONIVA [Concomitant]
     Dosage: 160 MG, Q1MON
  3. YAZ [Suspect]
     Indication: CONTRACEPTION
     Dosage: UNK
     Dates: start: 20070101, end: 20090401
  4. YASMIN [Suspect]
     Indication: CONTRACEPTION
     Dosage: UNK
     Dates: start: 20051201, end: 20070101
  5. YASMIN [Suspect]
     Indication: DYSMENORRHOEA

REACTIONS (10)
  - ANXIETY [None]
  - CEREBROVASCULAR ACCIDENT [None]
  - PAIN [None]
  - INJURY [None]
  - HEADACHE [None]
  - EMOTIONAL DISTRESS [None]
  - CEREBRAL THROMBOSIS [None]
  - HYPERTENSION [None]
  - TRANSIENT ISCHAEMIC ATTACK [None]
  - BLINDNESS [None]
